FAERS Safety Report 19459406 (Version 1)
Quarter: 2021Q2

REPORT INFORMATION
  Report Type: Spontaneous
  Country: US (occurrence: US)
  Receive Date: 20210624
  Receipt Date: 20210624
  Transmission Date: 20210717
  Serious: No
  Sender: FDA-Public Use
  Company Number: US-PFIZER INC-2021368237

PATIENT
  Age: 58 Year
  Sex: Female
  Weight: 121 kg

DRUGS (8)
  1. TIKOSYN [Concomitant]
     Active Substance: DOFETILIDE
     Dosage: 0.3 ML (UNDER SKIN)
     Route: 058
  2. ACTOS [Concomitant]
     Active Substance: PIOGLITAZONE HYDROCHLORIDE
     Dosage: 30 MG, DAILY
  3. GABAPENTIN. [Concomitant]
     Active Substance: GABAPENTIN
     Dosage: 300 MG, 3X/DAY
  4. DETROL LA [Suspect]
     Active Substance: TOLTERODINE TARTRATE
     Indication: HYPERTONIC BLADDER
     Dosage: 4 MG, 1X/DAY
     Route: 048
  5. ULTRAM [Concomitant]
     Active Substance: TRAMADOL HYDROCHLORIDE
     Dosage: 50 MG, EVERY 6 HOURS AS NEEDED
  6. PROTONIX [Concomitant]
     Active Substance: PANTOPRAZOLE SODIUM
     Dosage: 40 MG, DAILY
  7. CARAFATE [Concomitant]
     Active Substance: SUCRALFATE
     Dosage: 1 G, 4X/DAY
  8. LOSARTAN. [Concomitant]
     Active Substance: LOSARTAN
     Dosage: 50 MG, DAILY

REACTIONS (1)
  - Illness [Recovering/Resolving]
